FAERS Safety Report 19772346 (Version 2)
Quarter: 2021Q3

REPORT INFORMATION
  Report Type: Report from Study
  Country: US (occurrence: US)
  Receive Date: 20210901
  Receipt Date: 20210907
  Transmission Date: 20211014
  Serious: Yes (Death, Hospitalization)
  Sender: FDA-Public Use
  Company Number: US-EISAI MEDICAL RESEARCH-EC-2021-098704

PATIENT
  Age: 78 Year
  Sex: Male

DRUGS (2)
  1. PEMBROLIZUMAB. [Suspect]
     Active Substance: PEMBROLIZUMAB
     Indication: PLEOMORPHIC LIPOSARCOMA
     Dosage: UNKNOWN DOSE, FREQUENCY
     Route: 065
     Dates: start: 20210722, end: 20210821
  2. LENVATINIB [Suspect]
     Active Substance: LENVATINIB
     Indication: PLEOMORPHIC LIPOSARCOMA
     Dosage: UNKNOWN DOSE, FREQUENCY
     Route: 048
     Dates: start: 20210722, end: 20210821

REACTIONS (4)
  - Embolism [Unknown]
  - Dyspnoea [Unknown]
  - Pneumonia [Unknown]
  - Sepsis [Fatal]

NARRATIVE: CASE EVENT DATE: 20210822
